FAERS Safety Report 23879773 (Version 1)
Quarter: 2024Q2

REPORT INFORMATION
  Report Type: Spontaneous
  Country: US (occurrence: US)
  Receive Date: 20240521
  Receipt Date: 20240521
  Transmission Date: 20240716
  Serious: No
  Sender: FDA-Public Use
  Company Number: US-ASTELLAS-2024US011175

PATIENT
  Age: 56 Year
  Sex: Female

DRUGS (4)
  1. VEOZAH [Suspect]
     Active Substance: FEZOLINETANT
     Indication: Hot flush
     Route: 065
  2. VEOZAH [Suspect]
     Active Substance: FEZOLINETANT
     Route: 065
  3. BLACK COHOSH [Concomitant]
     Active Substance: BLACK COHOSH
     Indication: Hot flush
     Dosage: UNK UNK, UNKNOWN FREQ.
     Route: 065
  4. BLACK COHOSH [Concomitant]
     Active Substance: BLACK COHOSH
     Dosage: UNK UNK, UNKNOWN FREQ.
     Route: 065

REACTIONS (2)
  - Insomnia [Unknown]
  - Diarrhoea [Unknown]
